FAERS Safety Report 8034026-6 (Version None)
Quarter: 2012Q1

REPORT INFORMATION
  Report Type: 
  Country: None (occurrence: None)
  Receive Date: 20120110
  Receipt Date: 20120103
  Transmission Date: 20120608
  Serious: Yes (Hospitalization)
  Sender: FDA-Public Use
  Company Number: US-AMGEN-USASP2012000586

PATIENT
  Age: 66 Year
  Sex: Female
  Weight: 86.168 kg

DRUGS (12)
  1. REMICADE [Suspect]
     Dosage: 500 MG, Q6WK
     Dates: start: 20101123
  2. REMICADE [Suspect]
     Dosage: 500 MG, Q6WK
     Dates: start: 20110215
  3. PREDNISONE [Concomitant]
     Indication: RHEUMATOID ARTHRITIS
     Dosage: UNK
     Dates: start: 20071201
  4. LISINOPRIL [Concomitant]
     Indication: BLOOD PRESSURE
     Dosage: UNK UNK, QD
     Route: 048
  5. REMICADE [Suspect]
     Dosage: 500 MG, Q6WK
     Dates: start: 20110510
  6. ENBREL [Suspect]
     Indication: RHEUMATOID ARTHRITIS
     Dosage: 50 MG, QWK
     Route: 058
     Dates: start: 20090101, end: 20100601
  7. REMICADE [Suspect]
     Dosage: 500 MG, Q6WK
     Dates: start: 20110104
  8. TYLENOL (CAPLET) [Concomitant]
     Indication: PREMEDICATION
     Dosage: 1000 MG, QD
     Route: 048
     Dates: end: 20110520
  9. REMICADE [Suspect]
     Dosage: 500 MG, Q6WK
     Dates: start: 20110329
  10. BENADRYL [Concomitant]
     Dosage: 50 MG, QD
     Route: 048
     Dates: start: 20110510
  11. METHOTREXATE [Concomitant]
     Indication: RHEUMATOID ARTHRITIS
     Dosage: UNK
     Dates: start: 20071201
  12. REMICADE [Suspect]
     Indication: RHEUMATOID ARTHRITIS
     Dosage: 500 MG, Q6WK
     Route: 042
     Dates: start: 20100824

REACTIONS (15)
  - FEELING ABNORMAL [None]
  - PULMONARY MYCOSIS [None]
  - BRONCHITIS CHRONIC [None]
  - MALAISE [None]
  - DECREASED APPETITE [None]
  - NIGHT SWEATS [None]
  - BACTERIAL INFECTION [None]
  - PULMONARY MASS [None]
  - HEADACHE [None]
  - ASTHENIA [None]
  - VIRAL INFECTION [None]
  - THERAPEUTIC RESPONSE DECREASED [None]
  - DYSPNOEA [None]
  - RESPIRATORY TRACT INFECTION FUNGAL [None]
  - RHEUMATOID ARTHRITIS [None]
